FAERS Safety Report 5033003-7 (Version None)
Quarter: 2006Q2

REPORT INFORMATION
  Report Type: 
  Country: None (occurrence: None)
  Receive Date: 20060511
  Receipt Date: 20060414
  Transmission Date: 20061013
  Serious: Yes (Other)
  Sender: FDA-Public Use
  Company Number: 200613547US

PATIENT
  Age: 33 Year
  Sex: Female

DRUGS (2)
  1. INSULIN GLULISINE (APIDRA) [Suspect]
     Indication: DIABETES MELLITUS INSULIN-DEPENDENT
  2. INSULIN [Suspect]
     Indication: DIABETES MELLITUS INSULIN-DEPENDENT

REACTIONS (1)
  - HYPERGLYCAEMIA [None]
